FAERS Safety Report 5368108-4 (Version None)
Quarter: 2007Q2

REPORT INFORMATION
  Report Type: 
  Country: None (occurrence: None)
  Receive Date: 20070622
  Receipt Date: 20070613
  Transmission Date: 20071010
  Serious: Yes (Other)
  Sender: FDA-Public Use
  Company Number: FR-PFIZER INC-2007049948

PATIENT
  Sex: Female

DRUGS (2)
  1. XALATAN [Suspect]
  2. VIROPHTA [Concomitant]

REACTIONS (1)
  - KERATITIS HERPETIC [None]
